FAERS Safety Report 15882843 (Version 2)
Quarter: 2019Q1

REPORT INFORMATION
  Report Type: Spontaneous
  Country: GB (occurrence: GB)
  Receive Date: 20190129
  Receipt Date: 20190201
  Transmission Date: 20190417
  Serious: Yes (Hospitalization, Other)
  Sender: FDA-Public Use
  Company Number: GB-BRISTOL-MYERS SQUIBB COMPANY-BMS-2019-007028

PATIENT
  Age: 48 Year
  Sex: Male

DRUGS (7)
  1. FELODIPINE. [Concomitant]
     Active Substance: FELODIPINE
     Indication: PRODUCT USED FOR UNKNOWN INDICATION
     Dosage: 2.5 MG, (DRUG INTERVAL DOSAGE UNIT NUMBER- 1 DAY) UNK
     Route: 065
  2. BISOPROLOL [Concomitant]
     Active Substance: BISOPROLOL
     Indication: PRODUCT USED FOR UNKNOWN INDICATION
     Dosage: 1.25 MG, (DRUG INTERVAL DOSAGE UNIT NUMBER- 1 DAY) UNK
     Route: 065
  3. WARFARIN SODIUM. [Suspect]
     Active Substance: WARFARIN SODIUM
     Indication: PRODUCT USED FOR UNKNOWN INDICATION
     Dosage: 5MG DAILY ON A MONDAY THEN 4MG DAILY FOR THE REMAINDER OF THE WEEK
     Route: 048
     Dates: end: 20180627
  4. METFORMIN [Concomitant]
     Active Substance: METFORMIN HYDROCHLORIDE
     Indication: PRODUCT USED FOR UNKNOWN INDICATION
     Dosage: 2000 MG, (DRUG INTERVAL DOSAGE UNIT NUMBER- 1 DAY) UNK
     Route: 065
  5. BRINZOLAMIDE [Concomitant]
     Active Substance: BRINZOLAMIDE
     Indication: PRODUCT USED FOR UNKNOWN INDICATION
     Dosage: 1 DF, BID
     Route: 014
  6. SITAGLIPTIN [Concomitant]
     Active Substance: SITAGLIPTIN
     Indication: PRODUCT USED FOR UNKNOWN INDICATION
     Dosage: 50 MG, (DRUG INTERVAL DOSAGE UNIT NUMBER- 1 DAY) UNK
     Route: 065
  7. SIMVASTATIN. [Concomitant]
     Active Substance: SIMVASTATIN
     Indication: PRODUCT USED FOR UNKNOWN INDICATION
     Dosage: 40 MG, (DRUG INTERVAL DOSAGE UNIT NUMBER- 1 DAY) UNK
     Route: 065

REACTIONS (3)
  - Gastric ulcer [Unknown]
  - Anticoagulation drug level above therapeutic [Unknown]
  - Upper gastrointestinal haemorrhage [Recovered/Resolved]
